FAERS Safety Report 23385132 (Version 2)
Quarter: 2024Q1

REPORT INFORMATION
  Report Type: Other
  Country: SV (occurrence: SV)
  Receive Date: 20240110
  Receipt Date: 20240209
  Transmission Date: 20240409
  Serious: No
  Sender: FDA-Public Use
  Company Number: SV-TOLMAR, INC.-23SV045498

PATIENT
  Sex: Male

DRUGS (2)
  1. ELIGARD [Suspect]
     Active Substance: LEUPROLIDE ACETATE
     Indication: Prostate cancer
     Dosage: 45 MILLIGRAM, Q 6 MONTH
     Route: 058
  2. ELIGARD [Suspect]
     Active Substance: LEUPROLIDE ACETATE
     Indication: Prostate cancer
     Dosage: UNK

REACTIONS (2)
  - Malaise [Unknown]
  - Asthenia [Unknown]
